FAERS Safety Report 12121280 (Version 2)
Quarter: 2016Q1

REPORT INFORMATION
  Report Type: Spontaneous
  Country: SA (occurrence: SA)
  Receive Date: 20160226
  Receipt Date: 20160328
  Transmission Date: 20160526
  Serious: Yes (Hospitalization)
  Sender: FDA-Public Use
  Company Number: SA-SA-2016SA034204

PATIENT
  Sex: Female
  Weight: 64 kg

DRUGS (1)
  1. TAXOTERE [Suspect]
     Active Substance: DOCETAXEL
     Indication: BREAST CANCER
     Route: 065

REACTIONS (6)
  - Skin ulcer [Unknown]
  - Mobility decreased [Unknown]
  - Skin toxicity [Unknown]
  - Skin exfoliation [Unknown]
  - Osteomyelitis [Unknown]
  - Soft tissue swelling [Unknown]
